FAERS Safety Report 8355849-X (Version None)
Quarter: 2012Q2

REPORT INFORMATION
  Report Type: 
  Country: None (occurrence: None)
  Receive Date: 20120514
  Receipt Date: 20120504
  Transmission Date: 20120825
  Serious: Yes (Hospitalization)
  Sender: FDA-Public Use
  Company Number: IN-BRISTOL-MYERS SQUIBB COMPANY-16522252

PATIENT
  Age: 33 Year
  Sex: Female

DRUGS (11)
  1. AZULFIDINE [Concomitant]
     Dates: start: 20091128, end: 20120410
  2. PREDNISOLONE [Concomitant]
     Dates: start: 20111219
  3. BECOSULES [Concomitant]
     Dates: start: 20120504
  4. FERROUS FUMARATE + FOLIC ACID [Concomitant]
     Dates: start: 20110701
  5. PLAQUENIL [Concomitant]
     Dates: start: 20120426
  6. FOLIC ACID [Concomitant]
     Dates: start: 20100706
  7. ABATACEPT [Suspect]
     Indication: RHEUMATOID ARTHRITIS
     Dosage: BLINDED:13APR09 TO 28SEP09 OPEN:29SEP09-10APR12.
     Route: 058
     Dates: start: 20090413
  8. METHOTREXATE [Suspect]
     Indication: RHEUMATOID ARTHRITIS
     Dates: start: 20090128, end: 20120410
  9. PREDNISOLONE [Concomitant]
     Dates: start: 20111219
  10. ACETAMINOPHEN [Concomitant]
     Dates: start: 20120416
  11. SHELCAL [Concomitant]
     Dates: start: 20090128

REACTIONS (3)
  - ARTHRITIS BACTERIAL [None]
  - ANAEMIA [None]
  - TENOSYNOVITIS [None]
